FAERS Safety Report 6517019-7 (Version None)
Quarter: 2009Q4

REPORT INFORMATION
  Report Type: 
  Country: None (occurrence: None)
  Receive Date: 20091223
  Receipt Date: 20091215
  Transmission Date: 20100525
  Serious: Yes (Hospitalization)
  Sender: FDA-Public Use
  Company Number: GXKR2009ES13486

PATIENT
  Age: 50 Year
  Sex: Female

DRUGS (4)
  1. LINEZOLID (NGX) [Interacting]
     Indication: STAPHYLOCOCCAL INFECTION
     Route: 065
  2. METOCLOPRAMIDE (NGX) [Suspect]
     Indication: NAUSEA
     Dosage: 10 MG, Q8H
     Route: 065
  3. METOCLOPRAMIDE (NGX) [Interacting]
     Indication: VOMITING
  4. TRYPTOPHAN, L- [Interacting]
     Indication: PARENTERAL NUTRITION
     Route: 065

REACTIONS (9)
  - CLONUS [None]
  - DRUG INTERACTION [None]
  - HYPERREFLEXIA [None]
  - HYPERTENSION [None]
  - MYDRIASIS [None]
  - NEUROLOGICAL DECOMPENSATION [None]
  - PYREXIA [None]
  - SEROTONIN SYNDROME [None]
  - SINUS TACHYCARDIA [None]
